FAERS Safety Report 20987308 (Version 1)
Quarter: 2022Q2

REPORT INFORMATION
  Report Type: Spontaneous
  Country: AU (occurrence: AU)
  Receive Date: 20220621
  Receipt Date: 20220621
  Transmission Date: 20220721
  Serious: Yes (Other)
  Sender: FDA-Public Use
  Company Number: AU-LEO Pharma-343508

PATIENT
  Age: 51 Year
  Sex: Male

DRUGS (2)
  1. CALCIPOTRIENE [Suspect]
     Active Substance: CALCIPOTRIENE
     Indication: Product used for unknown indication
     Dosage: TO THE FACE
  2. FLUOROURACIL [Suspect]
     Active Substance: FLUOROURACIL
     Indication: Product used for unknown indication
     Route: 061

REACTIONS (5)
  - Application site erythema [Unknown]
  - Application site swelling [Recovering/Resolving]
  - Application site vesicles [Unknown]
  - Generalised oedema [Unknown]
  - Product administered at inappropriate site [Unknown]
